FAERS Safety Report 12645184 (Version 2)
Quarter: 2017Q2

REPORT INFORMATION
  Report Type: Report from Study
  Country: None (occurrence: BR)
  Receive Date: 20160811
  Receipt Date: 20170524
  Transmission Date: 20170830
  Serious: Yes (Hospitalization, Other)
  Sender: FDA-Public Use
  Company Number: BR-ABBVIE-16P-020-1699230-00

PATIENT
  Age: 57 Year
  Sex: Female
  Weight: 56 kg

DRUGS (1)
  1. DEPAKOTE [Suspect]
     Active Substance: DIVALPROEX SODIUM
     Indication: PETIT MAL EPILEPSY
     Route: 065
     Dates: end: 2015

REACTIONS (8)
  - Finger amputation [Unknown]
  - Arthralgia [Unknown]
  - Skin reaction [Unknown]
  - Petit mal epilepsy [Unknown]
  - Malaise [Unknown]
  - Accident [Unknown]
  - Drug ineffective [Unknown]
  - Burns third degree [Recovering/Resolving]

NARRATIVE: CASE EVENT DATE: 20151229
